FAERS Safety Report 10739123 (Version 2)
Quarter: 2015Q1

REPORT INFORMATION
  Report Type: Spontaneous
  Country: US (occurrence: US)
  Receive Date: 20150126
  Receipt Date: 20150327
  Transmission Date: 20150721
  Serious: Yes (Hospitalization)
  Sender: FDA-Public Use
  Company Number: US-ACTELION-A-US2015-111497

PATIENT
  Age: 41 Year
  Sex: Female

DRUGS (1)
  1. VELETRI [Suspect]
     Active Substance: EPOPROSTENOL
     Indication: PULMONARY ARTERIAL HYPERTENSION
     Dosage: 7 NG/KG, PER MIN
     Route: 042
     Dates: start: 20141105

REACTIONS (4)
  - Application site irritation [Unknown]
  - Catheter site discharge [Unknown]
  - Nephrolithiasis [Unknown]
  - Rash papular [Unknown]

NARRATIVE: CASE EVENT DATE: 20150220
